FAERS Safety Report 10044209 (Version 1)
Quarter: 2014Q1

REPORT INFORMATION
  Report Type: Spontaneous
  Country: US (occurrence: US)
  Receive Date: 20140328
  Receipt Date: 20140328
  Transmission Date: 20141002
  Serious: No
  Sender: FDA-Public Use
  Company Number: US-BAYER-2014-040173

PATIENT
  Age: 24 Year
  Sex: Female
  Weight: 49 kg

DRUGS (2)
  1. ALEVE TABLET [Suspect]
     Indication: ANALGESIC THERAPY
     Dosage: 1 DF, BID
     Route: 048
     Dates: start: 20140310
  2. ALEVE TABLET [Suspect]
     Indication: ORAL PAIN

REACTIONS (1)
  - Drug ineffective [None]
